FAERS Safety Report 14243639 (Version 1)
Quarter: 2017Q4

REPORT INFORMATION
  Report Type: Spontaneous
  Country: CN (occurrence: CN)
  Receive Date: 20171201
  Receipt Date: 20171201
  Transmission Date: 20180321
  Serious: Yes (Disabling)
  Sender: FDA-Public Use
  Company Number: CN-PFIZER INC-2017515178

PATIENT
  Age: 72 Year
  Sex: Male
  Weight: 58 kg

DRUGS (8)
  1. SULPERAZON [Suspect]
     Active Substance: CEFOPERAZONE SODIUM\SULBACTAM SODIUM
     Dosage: 40 MG, DAILY
     Route: 041
     Dates: start: 20170830, end: 20170902
  2. MEDROL [Suspect]
     Active Substance: METHYLPREDNISOLONE
     Indication: ASTHMA
     Dosage: 8 MG, 2X/DAY
     Route: 048
     Dates: start: 20170728, end: 20170817
  3. MEDROL [Suspect]
     Active Substance: METHYLPREDNISOLONE
     Dosage: 8 MG, 2X/DAY
     Route: 048
     Dates: start: 20170824, end: 20170904
  4. SULPERAZON [Suspect]
     Active Substance: CEFOPERAZONE SODIUM\SULBACTAM SODIUM
     Dosage: 40 MG, DAILY
     Route: 041
     Dates: start: 20170724, end: 20170728
  5. SULPERAZON [Suspect]
     Active Substance: CEFOPERAZONE SODIUM\SULBACTAM SODIUM
     Dosage: 40 MG, DAILY
     Route: 041
     Dates: start: 20170814, end: 20170824
  6. SULPERAZON [Suspect]
     Active Substance: CEFOPERAZONE SODIUM\SULBACTAM SODIUM
     Indication: ASTHMA
     Dosage: 40 MG, 1X/DAY
     Route: 041
     Dates: start: 20170811, end: 20170814
  7. SULPERAZON [Suspect]
     Active Substance: CEFOPERAZONE SODIUM\SULBACTAM SODIUM
     Dosage: 40 MG, DAILY
     Route: 041
     Dates: start: 20170807, end: 20170811
  8. SULPERAZON [Suspect]
     Active Substance: CEFOPERAZONE SODIUM\SULBACTAM SODIUM
     Dosage: 40 MG, DAILY
     Route: 041
     Dates: start: 20170922, end: 20170929

REACTIONS (2)
  - Product use in unapproved indication [Unknown]
  - Fracture [Recovering/Resolving]

NARRATIVE: CASE EVENT DATE: 20171005
